FAERS Safety Report 5765825-9 (Version None)
Quarter: 2008Q2

REPORT INFORMATION
  Report Type: 
  Country: None (occurrence: None)
  Receive Date: 20080609
  Receipt Date: 20080422
  Transmission Date: 20081010
  Serious: No
  Sender: FDA-Public Use
  Company Number: 002#2#2008-00312

PATIENT
  Sex: Female

DRUGS (2)
  1. NEUPRO [Suspect]
     Indication: DRUG USE FOR UNKNOWN INDICATION
     Dosage: 6MG/24H, 1 IN 1 D, TRANSDERMAL; MG/24H, 1 IN 1 D, TRANSDERMAL
     Route: 062
     Dates: start: 20071101, end: 20080101
  2. NEUPRO [Suspect]
     Indication: DRUG USE FOR UNKNOWN INDICATION
     Dosage: 6MG/24H, 1 IN 1 D, TRANSDERMAL; MG/24H, 1 IN 1 D, TRANSDERMAL
     Route: 062
     Dates: start: 20080101

REACTIONS (5)
  - ANXIETY [None]
  - ASTHENIA [None]
  - BALANCE DISORDER [None]
  - TEARFULNESS [None]
  - TREMOR [None]
